FAERS Safety Report 23049207 (Version 1)
Quarter: 2023Q4

REPORT INFORMATION
  Report Type: Spontaneous
  Country: US (occurrence: None)
  Receive Date: 20231005
  Receipt Date: 20231005
  Transmission Date: 20240110
  Serious: Yes (Disabling)
  Sender: FDA-Public Use
  Company Number: None

PATIENT
  Age: 36 Year
  Sex: Female
  Weight: 72.12 kg

DRUGS (5)
  1. CAPLYTA [Suspect]
     Active Substance: LUMATEPERONE
  2. Levetracetam [Concomitant]
  3. ZONISAMIDE [Concomitant]
     Active Substance: ZONISAMIDE
  4. CARBAMAZEPINE [Concomitant]
     Active Substance: CARBAMAZEPINE
  5. GNC Select Calcium Gummy [Concomitant]

REACTIONS (18)
  - Burning sensation [None]
  - Paraesthesia [None]
  - Flatulence [None]
  - Gastrointestinal disorder [None]
  - Feeling abnormal [None]
  - Headache [None]
  - Vision blurred [None]
  - Pruritus [None]
  - Hunger [None]
  - Skin fissures [None]
  - Intestinal obstruction [None]
  - Abnormal faeces [None]
  - Poor quality sleep [None]
  - Hallucination, visual [None]
  - Amnesia [None]
  - Nightmare [None]
  - Ill-defined disorder [None]
  - Brief resolved unexplained event [None]
